FAERS Safety Report 12988433 (Version 2)
Quarter: 2017Q1

REPORT INFORMATION
  Report Type: Spontaneous
  Country: GB (occurrence: GB)
  Receive Date: 20161130
  Receipt Date: 20170323
  Transmission Date: 20170428
  Serious: Yes (Life-Threatening, Other)
  Sender: FDA-Public Use
  Company Number: GB-CANTON LABORATORIES, LLC-1060269

PATIENT
  Age: 60 Year
  Sex: Male

DRUGS (3)
  1. FERROUS FUMARATE [Concomitant]
     Active Substance: FERROUS FUMARATE
     Route: 065
  2. NAPROSYN [Suspect]
     Active Substance: NAPROXEN
     Indication: ARTHRITIS
  3. OMEPRAZOLE. [Concomitant]
     Active Substance: OMEPRAZOLE
     Route: 065

REACTIONS (5)
  - Haematemesis [Unknown]
  - Anaemia [Unknown]
  - Oesophageal ulcer [Unknown]
  - Loss of consciousness [Unknown]
  - Haemorrhage [Unknown]

NARRATIVE: CASE EVENT DATE: 20161020
